FAERS Safety Report 23215449 (Version 2)
Quarter: 2023Q4

REPORT INFORMATION
  Report Type: Spontaneous
  Country: CH (occurrence: CH)
  Receive Date: 20231122
  Receipt Date: 20231124
  Transmission Date: 20240110
  Serious: Yes (Other)
  Sender: FDA-Public Use
  Company Number: CH-CELLTRION INC.-2023CH022318

PATIENT

DRUGS (4)
  1. INFLIXIMAB [Suspect]
     Active Substance: INFLIXIMAB
     Indication: Colitis ulcerative
     Dosage: FIRST DOSE: END OF OCTOBER
  2. INFLIXIMAB [Suspect]
     Active Substance: INFLIXIMAB
     Dosage: SECOND DOSE: SECOND WEEK OF NOVEMBER
  3. INFLIXIMAB [Suspect]
     Active Substance: INFLIXIMAB
     Dosage: 9:41 REMSIMA 300 MG, RUN TO 25 ML/H/9:55 INCREASED TO 75 ML/H/ 10:01 INCREASED TO 150 ML/H/11:40 INF
  4. SODIUM CHLORIDE [Concomitant]
     Active Substance: SODIUM CHLORIDE
     Dosage: 9:10 NACL 0.5% 250 ML

REACTIONS (3)
  - Psychotic symptom [Unknown]
  - Alcoholic [Unknown]
  - Sleep disorder [Unknown]

NARRATIVE: CASE EVENT DATE: 20231117
